FAERS Safety Report 24383604 (Version 2)
Quarter: 2025Q1

REPORT INFORMATION
  Report Type: Spontaneous
  Country: US (occurrence: US)
  Receive Date: 20241001
  Receipt Date: 20250113
  Transmission Date: 20250409
  Serious: No
  Sender: SANDOZ
  Company Number: US-SANDOZ-SDZ2024US083757

PATIENT
  Sex: Female

DRUGS (3)
  1. ESTRADIOL [Suspect]
     Active Substance: ESTRADIOL
     Indication: Product used for unknown indication
     Dosage: 0.05 MG, BIW
     Route: 062
  2. PROGESTERONE [Concomitant]
     Active Substance: PROGESTERONE
     Indication: Thyroid therapy
     Dosage: 100 MG, QD
     Route: 065
  3. THYROID [Concomitant]
     Active Substance: LEVOTHYROXINE\LIOTHYRONINE
     Indication: Product used for unknown indication
     Route: 065

REACTIONS (4)
  - Increased appetite [Recovered/Resolved]
  - Temperature intolerance [Recovered/Resolved]
  - Hot flush [Recovered/Resolved]
  - Headache [Recovered/Resolved]
